APPROVED DRUG PRODUCT: CYCLACILLIN
Active Ingredient: CYCLACILLIN
Strength: 500MG
Dosage Form/Route: TABLET;ORAL
Application: A062895 | Product #002
Applicant: TEVA PHARMACEUTICALS USA INC
Approved: Aug 4, 1988 | RLD: No | RS: No | Type: DISCN